FAERS Safety Report 24435655 (Version 3)
Quarter: 2025Q3

REPORT INFORMATION
  Report Type: Report from Study
  Country: US (occurrence: US)
  Receive Date: 20241015
  Receipt Date: 20250809
  Transmission Date: 20251021
  Serious: Yes (Hospitalization, Other)
  Sender: ALEXION PHARMACEUTICALS
  Company Number: US-AstraZeneca-CH-00720184A

PATIENT
  Sex: Female
  Weight: 77.098 kg

DRUGS (1)
  1. FASENRA [Suspect]
     Active Substance: BENRALIZUMAB
     Indication: Asthma prophylaxis
     Dosage: 30 MILLIGRAM PER MILLILITRE, Q8W

REACTIONS (3)
  - Pulmonary hypertension [Unknown]
  - Haemoglobin increased [Unknown]
  - Dyspnoea [Unknown]
